FAERS Safety Report 6896740-5 (Version None)
Quarter: 2010Q3

REPORT INFORMATION
  Report Type: 
  Country: None (occurrence: None)
  Receive Date: 20100802
  Receipt Date: 20061230
  Transmission Date: 20110219
  Serious: Yes (Other)
  Sender: FDA-Public Use
  Company Number: US-PFIZER INC-2007001397

PATIENT
  Sex: Female

DRUGS (1)
  1. LYRICA [Suspect]
     Dates: end: 20061201

REACTIONS (3)
  - GAIT DISTURBANCE [None]
  - ILL-DEFINED DISORDER [None]
  - SPEECH DISORDER [None]
